FAERS Safety Report 5571435-9 (Version None)
Quarter: 2007Q4

REPORT INFORMATION
  Report Type: 
  Country: None (occurrence: None)
  Receive Date: 20071221
  Receipt Date: 20071217
  Transmission Date: 20080405
  Serious: Yes (Death)
  Sender: FDA-Public Use
  Company Number: US-BRISTOL-MYERS SQUIBB COMPANY-14017206

PATIENT
  Age: 58 Year
  Sex: Male

DRUGS (7)
  1. HYDROXYCARBAMIDE [Suspect]
     Indication: GLIOBLASTOMA MULTIFORME
     Dosage: DOSE REDUCED DECREASED TO 500 MG ONCE DAILY.
  2. SULFAMETHOXAZOLE AND TRIMETHOPRIM [Suspect]
  3. GLEEVEC [Suspect]
     Indication: GLIOBLASTOMA MULTIFORME
  4. LEVETIRACETAM [Concomitant]
  5. PANTOPRAZOLE SODIUM [Concomitant]
  6. LEVOTHYROXINE SODIUM [Concomitant]
  7. DEXAMETHASONE TAB [Concomitant]

REACTIONS (4)
  - ANAEMIA [None]
  - LEUKOPENIA [None]
  - MALIGNANT NEOPLASM PROGRESSION [None]
  - THROMBOCYTOPENIA [None]
